FAERS Safety Report 4666354-6 (Version None)
Quarter: 2005Q2

REPORT INFORMATION
  Report Type: 
  Country: None (occurrence: None)
  Receive Date: 20050519
  Receipt Date: 20050505
  Transmission Date: 20051028
  Serious: Yes (Hospitalization, Other)
  Sender: FDA-Public Use
  Company Number: PHEH2005US05209

PATIENT
  Age: 51 Year
  Sex: Female
  Weight: 88 kg

DRUGS (2)
  1. TENORETIC 100 [Concomitant]
     Dosage: 50/25 MG/UNK
     Dates: start: 20050401
  2. DIOVAN [Suspect]
     Indication: HYPERTENSION
     Dosage: 80 MG, QD
     Route: 048
     Dates: start: 20020103, end: 20050421

REACTIONS (3)
  - FLANK PAIN [None]
  - GENERALISED OEDEMA [None]
  - MICROALBUMINURIA [None]
